FAERS Safety Report 13510000 (Version 2)
Quarter: 2017Q3

REPORT INFORMATION
  Report Type: Spontaneous
  Country: US (occurrence: US)
  Receive Date: 20170503
  Receipt Date: 20170803
  Transmission Date: 20171127
  Serious: No
  Sender: FDA-Public Use
  Company Number: US-SA-2017SA061273

PATIENT
  Age: 32 Year
  Sex: Male
  Weight: 88.9 kg

DRUGS (9)
  1. PRALUENT [Suspect]
     Active Substance: ALIROCUMAB
     Indication: HYPERCHOLESTEROLAEMIA
     Route: 058
     Dates: start: 20160824, end: 20161020
  2. PRALUENT [Suspect]
     Active Substance: ALIROCUMAB
     Indication: HYPERCHOLESTEROLAEMIA
     Route: 058
     Dates: end: 20170101
  3. EZETIMIBE. [Concomitant]
     Active Substance: EZETIMIBE
     Indication: HYPERLIPIDAEMIA
     Dates: start: 2014
  4. COLESEVELAM [Concomitant]
     Active Substance: COLESEVELAM
     Indication: HYPERLIPIDAEMIA
     Dates: start: 2014
  5. BOCOCIZUMAB [Concomitant]
     Active Substance: BOCOCIZUMAB
  6. ROSUVASTATIN. [Concomitant]
     Active Substance: ROSUVASTATIN
     Indication: HYPERLIPIDAEMIA
     Dates: start: 2014
  7. ALIROCUMAB PREFILLED PEN [Concomitant]
     Active Substance: ALIROCUMAB
     Indication: HYPERCHOLESTEROLAEMIA
     Dates: end: 20170101
  8. ALIROCUMAB PREFILLED PEN [Concomitant]
     Active Substance: ALIROCUMAB
     Indication: HYPERCHOLESTEROLAEMIA
     Dates: start: 20160824, end: 20161020
  9. EVOLOCUMAB [Concomitant]
     Active Substance: EVOLOCUMAB

REACTIONS (1)
  - Low density lipoprotein increased [Not Recovered/Not Resolved]
